FAERS Safety Report 19460749 (Version 1)
Quarter: 2021Q2

REPORT INFORMATION
  Report Type: Report from Study
  Country: None (occurrence: AE)
  Receive Date: 20210625
  Receipt Date: 20210625
  Transmission Date: 20210717
  Serious: Yes (Hospitalization)
  Sender: FDA-Public Use
  Company Number: AE-ABBVIE-21K-166-3920742-00

PATIENT
  Age: 80 Year
  Sex: Female
  Weight: 72 kg

DRUGS (7)
  1. SEROQUEL [Concomitant]
     Active Substance: QUETIAPINE FUMARATE
     Indication: ANTIDEPRESSANT THERAPY
     Route: 048
     Dates: start: 20190923
  2. ARICEPT [Concomitant]
     Active Substance: DONEPEZIL HYDROCHLORIDE
     Indication: DEMENTIA
     Dosage: ONCE A DAY
     Route: 048
  3. TRAZODONE [Concomitant]
     Active Substance: TRAZODONE HYDROCHLORIDE
     Indication: AFFECTIVE DISORDER
     Dosage: ONCE A DAY
     Route: 048
  4. PRADAXA [Concomitant]
     Active Substance: DABIGATRAN ETEXILATE MESYLATE
     Indication: ANTICOAGULANT THERAPY
     Dosage: ONCE A DAY
     Route: 048
     Dates: start: 20190923
  5. DUODOPA [Suspect]
     Active Substance: CARBIDOPA\LEVODOPA
     Route: 050
     Dates: start: 20200629, end: 20210523
  6. SINEMET [Concomitant]
     Active Substance: CARBIDOPA\LEVODOPA
     Indication: PARKINSON^S DISEASE
     Dosage: 50MG/200MG
     Route: 048
  7. DUODOPA [Suspect]
     Active Substance: CARBIDOPA\LEVODOPA
     Indication: PARKINSON^S DISEASE
     Dosage: AM DOSE?11ML CONT DOSE?3.2ML 3.3ML (AFTERNOON) EXTRA DOSE?2ML
     Route: 050
     Dates: start: 20190416

REACTIONS (1)
  - Device occlusion [Recovered/Resolved]

NARRATIVE: CASE EVENT DATE: 20210523
